FAERS Safety Report 4395080-6 (Version None)
Quarter: 2004Q3

REPORT INFORMATION
  Report Type: 
  Country: None (occurrence: None)
  Receive Date: 20040706
  Receipt Date: 20040622
  Transmission Date: 20050211
  Serious: Yes (Hospitalization)
  Sender: FDA-Public Use
  Company Number: US-2004-027921

PATIENT
  Age: 49 Year
  Sex: Male

DRUGS (3)
  1. CAMPATH(ALEMTUZUMAB)AMPULE [Suspect]
     Indication: IMMUNOSUPPRESSION
     Dosage: 30 MG (30 MIN. PRE-TRANSPLANT), INTRAVENOUS
     Route: 042
  2. CELLCEPT [Concomitant]
  3. PREDNISONE [Concomitant]

REACTIONS (1)
  - KIDNEY TRANSPLANT REJECTION [None]
